FAERS Safety Report 7317977-7 (Version None)
Quarter: 2011Q1

REPORT INFORMATION
  Report Type: 
  Country: None (occurrence: None)
  Receive Date: 20110227
  Receipt Date: 20110131
  Transmission Date: 20110831
  Serious: No
  Sender: FDA-Public Use
  Company Number: US-B.I. PHARMACEUTICALS,INC./RIDGEFIELD-2010-BP-15231BP

PATIENT
  Sex: Male

DRUGS (22)
  1. CARVEDILOL [Concomitant]
  2. XYZAL [Concomitant]
  3. SYNTHROID [Concomitant]
  4. LASIX [Concomitant]
  5. FLOMAX [Concomitant]
  6. FOLIC ACID [Concomitant]
  7. ZOCOR [Concomitant]
  8. HYDROCODONE BITARTRATE [Concomitant]
  9. PRADAXA [Suspect]
     Indication: ATRIAL FIBRILLATION
     Dosage: 300 MG
     Route: 048
  10. LISINOPRIL [Concomitant]
  11. HYTRIN [Concomitant]
  12. IRON [Concomitant]
  13. MULTI-VITAMIN [Concomitant]
  14. PRADAXA [Suspect]
     Indication: CARDIAC PACEMAKER INSERTION
  15. LANOXIN [Concomitant]
  16. POTASSIUM [Concomitant]
  17. PRANDIN [Concomitant]
  18. ALPRASATAM [Concomitant]
  19. SINGULAIR [Concomitant]
  20. NEXIUM [Concomitant]
  21. SUPP B COMPLEX [Concomitant]
  22. TRAZEPAM [Concomitant]

REACTIONS (4)
  - COUGH [None]
  - FOREIGN BODY [None]
  - SENSATION OF FOREIGN BODY [None]
  - THROAT IRRITATION [None]
